FAERS Safety Report 17802978 (Version 1)
Quarter: 2020Q2

REPORT INFORMATION
  Report Type: Report from Study
  Country: US (occurrence: US)
  Receive Date: 20200519
  Receipt Date: 20200519
  Transmission Date: 20200714
  Serious: Yes (Other)
  Sender: FDA-Public Use
  Company Number: US-ASTELLAS-2020US016874

PATIENT
  Age: 70 Year
  Sex: Male

DRUGS (1)
  1. ENZALUTAMIDE [Suspect]
     Active Substance: ENZALUTAMIDE
     Indication: PROSTATE CANCER
     Dosage: UNK, UNKNOWN FREQ.
     Route: 048
     Dates: start: 202003, end: 20200412

REACTIONS (4)
  - Neuropathy peripheral [Unknown]
  - Pyrexia [Unknown]
  - Fatigue [Unknown]
  - Initial insomnia [Unknown]

NARRATIVE: CASE EVENT DATE: 20200412
